FAERS Safety Report 6315724-9 (Version None)
Quarter: 2009Q3

REPORT INFORMATION
  Report Type: 
  Country: None (occurrence: None)
  Receive Date: 20090818
  Receipt Date: 20090810
  Transmission Date: 20100115
  Serious: Yes (Other)
  Sender: FDA-Public Use
  Company Number: 2009SP019215

PATIENT
  Age: 73 Year
  Sex: Male

DRUGS (7)
  1. MIRALAX [Suspect]
     Indication: DRUG USE FOR UNKNOWN INDICATION
     Dosage: TIW; PO
     Route: 048
     Dates: start: 20090708, end: 20090807
  2. RAMIPRIL [Suspect]
     Indication: DRUG USE FOR UNKNOWN INDICATION
  3. SIMVASTATIN [Suspect]
     Indication: DRUG USE FOR UNKNOWN INDICATION
  4. ASPIRIN [Suspect]
  5. TOPROL-XL [Concomitant]
  6. PRILOSEC [Concomitant]
  7. DIGOXIN [Concomitant]

REACTIONS (1)
  - LIP SWELLING [None]
